FAERS Safety Report 21387988 (Version 1)
Quarter: 2022Q3

REPORT INFORMATION
  Report Type: Report from Study
  Country: BE (occurrence: BE)
  Receive Date: 20220928
  Receipt Date: 20220928
  Transmission Date: 20221027
  Serious: Yes (Death)
  Sender: FDA-Public Use
  Company Number: BE-ABBVIE-4132213

PATIENT
  Sex: Female
  Weight: 50 kg

DRUGS (13)
  1. CARBIDOPA\LEVODOPA [Suspect]
     Active Substance: CARBIDOPA\LEVODOPA
     Indication: Product used for unknown indication
     Dosage: MD 3.0 ML; CD 1.8 ML/HR DURING 24 HOURS; ED 1.0 ML; CND 1.0 ML/HR
     Route: 050
     Dates: start: 20220408, end: 20220615
  2. CARBIDOPA\LEVODOPA [Suspect]
     Active Substance: CARBIDOPA\LEVODOPA
     Route: 050
     Dates: start: 20170821
  3. CARBIDOPA\LEVODOPA [Suspect]
     Active Substance: CARBIDOPA\LEVODOPA
     Dosage: MD 3.0 ML; CD 1.8 ML/HR DURING 24 HOURS; ED 1.0 ML; CND 1.0 ML/HR
     Route: 050
     Dates: start: 20220615
  4. AZILECT [Concomitant]
     Active Substance: RASAGILINE MESYLATE
     Indication: Product used for unknown indication
  5. Pantomed [Concomitant]
     Indication: Product used for unknown indication
     Dosage: FORM STRENGTH 20
  6. BENSERAZIDE\LEVODOPA [Concomitant]
     Active Substance: BENSERAZIDE\LEVODOPA
     Indication: Product used for unknown indication
     Dosage: TIME INTERVAL: 0.33333333 DAYS: FORM STRENGTH 250.
  7. Riopan [Concomitant]
     Indication: Product used for unknown indication
     Dosage: SUSPENSION, FORM STRENGTH 250.
  8. PRAMIPEXOLE [Concomitant]
     Active Substance: PRAMIPEXOLE
     Indication: Product used for unknown indication
     Dosage: TIME INTERVAL: 0.33333333 DAYS: FORM STRENGTH 0.7
  9. PLAVIX [Concomitant]
     Active Substance: CLOPIDOGREL BISULFATE
     Indication: Product used for unknown indication
     Dosage: FORM STRENGTH 75, AT 8.00 HOUR.
  10. hylo-gel [Concomitant]
     Indication: Product used for unknown indication
  11. OPTICALM LIPOMYST [Concomitant]
     Indication: Product used for unknown indication
     Dosage: DROP
  12. HALOPERIDOL [Concomitant]
     Active Substance: HALOPERIDOL
     Indication: Product used for unknown indication
     Dosage: AT 20 HOUR
  13. OFLOXACIN [Concomitant]
     Active Substance: OFLOXACIN
     Indication: Product used for unknown indication
     Dosage: TWO TIMES 1 IN BOTH EYES, DROP. FREQUENCY AT 8 AND 20 HOUR

REACTIONS (1)
  - Death [Fatal]
